FAERS Safety Report 8097241-1 (Version None)
Quarter: 2012Q1

REPORT INFORMATION
  Report Type: 
  Country: None (occurrence: None)
  Receive Date: 20120128
  Receipt Date: 20110628
  Transmission Date: 20120608
  Serious: No
  Sender: FDA-Public Use
  Company Number: US-ABBOTT-11P-163-0835095-00

PATIENT
  Sex: Male
  Weight: 83.99 kg

DRUGS (5)
  1. HUMIRA [Suspect]
     Indication: RHEUMATOID ARTHRITIS
     Dates: start: 20110614
  2. LOSARTAN POTASSIUM [Concomitant]
     Indication: HYPERTENSION
  3. AMITRIPTYLINE HCL [Concomitant]
     Indication: ILL-DEFINED DISORDER
  4. ASPIRIN [Concomitant]
     Indication: HYPERTENSION
  5. ELAVIL [Concomitant]
     Indication: DEPRESSION

REACTIONS (1)
  - PAIN [None]
